FAERS Safety Report 12608056 (Version 2)
Quarter: 2016Q3

REPORT INFORMATION
  Report Type: Spontaneous
  Country: AU (occurrence: AU)
  Receive Date: 20160729
  Receipt Date: 20160824
  Transmission Date: 20161109
  Serious: Yes (Hospitalization, Other)
  Sender: FDA-Public Use
  Company Number: AU-GILEAD-2016-0225422

PATIENT
  Age: 48 Year
  Sex: Female

DRUGS (4)
  1. HARVONI [Suspect]
     Active Substance: LEDIPASVIR\SOFOSBUVIR
     Indication: HEPATITIS C
     Dosage: UNK UNKNOWN, UNK
     Route: 048
     Dates: start: 20160516, end: 20160808
  2. ENDONE [Concomitant]
     Active Substance: OXYCODONE HYDROCHLORIDE
     Indication: LYMPHOMA
     Dosage: UNK UNKNOWN, UNK
     Route: 048
  3. PARADOL                            /00020001/ [Concomitant]
     Indication: LYMPHOMA
     Dosage: UNK UNKNOWN, UNK
     Route: 048
  4. RITUXIMAB [Concomitant]
     Active Substance: RITUXIMAB
     Indication: LYMPHOMA
     Dosage: UNK UNKNOWN, UNK
     Route: 042

REACTIONS (1)
  - Non-Hodgkin^s lymphoma recurrent [Not Recovered/Not Resolved]

NARRATIVE: CASE EVENT DATE: 20160715
